FAERS Safety Report 15803443 (Version 1)
Quarter: 2019Q1

REPORT INFORMATION
  Report Type: Spontaneous
  Country: US (occurrence: US)
  Receive Date: 20190109
  Receipt Date: 20190109
  Transmission Date: 20190417
  Serious: Yes (Other)
  Sender: FDA-Public Use
  Company Number: US-HERITAGE PHARMACEUTICALS-2018HTG00615

PATIENT
  Sex: Female

DRUGS (2)
  1. TWO OTHER UNSPECIFIED PRODUCTS WITH PROPYLENE GLYCOL [Suspect]
     Active Substance: PROPYLENE GLYCOL
  2. BUPROPION HYDROCHLORIDE. [Suspect]
     Active Substance: BUPROPION HYDROCHLORIDE
     Dosage: 225 MG, 1X/DAY

REACTIONS (4)
  - Hypersensitivity [Unknown]
  - Erythema [Unknown]
  - Renal cyst [Unknown]
  - Urticaria [Unknown]
